FAERS Safety Report 5137400-0 (Version None)
Quarter: 2006Q4

REPORT INFORMATION
  Report Type: 
  Country: None (occurrence: None)
  Receive Date: 20061030
  Receipt Date: 20051025
  Transmission Date: 20070319
  Serious: No
  Sender: FDA-Public Use
  Company Number: US-GLAXOSMITHKLINE-A0579838A

PATIENT
  Sex: Female

DRUGS (8)
  1. ADVAIR HFA [Suspect]
     Indication: DRUG USE FOR UNKNOWN INDICATION
     Route: 055
  2. INSULIN [Concomitant]
     Route: 065
  3. DIABETES MEDICATION [Concomitant]
     Route: 048
  4. FLOVENT [Concomitant]
     Route: 055
  5. MAXAIR [Concomitant]
     Route: 055
  6. XOPENEX [Concomitant]
     Route: 065
  7. PULMICORT [Concomitant]
     Route: 065
  8. SINGULAIR [Concomitant]
     Route: 048

REACTIONS (7)
  - ARTERIAL OCCLUSIVE DISEASE [None]
  - BLOOD GLUCOSE INCREASED [None]
  - BONE DENSITY DECREASED [None]
  - CARDIAC DISORDER [None]
  - CHEST PAIN [None]
  - DRUG INEFFECTIVE [None]
  - PALPITATIONS [None]
